FAERS Safety Report 11070814 (Version 1)
Quarter: 2015Q2

REPORT INFORMATION
  Report Type: Report from Study
  Country: CA (occurrence: CA)
  Receive Date: 20150428
  Receipt Date: 20150428
  Transmission Date: 20150821
  Serious: Yes (Hospitalization)
  Sender: FDA-Public Use
  Company Number: CA-009507513-1504CAN021388

PATIENT
  Age: 70 Year
  Sex: Male
  Weight: 86.2 kg

DRUGS (10)
  1. TEMODAL [Suspect]
     Active Substance: TEMOZOLOMIDE
     Indication: GLIOBLASTOMA
     Dosage: 125 MG/M2, UNK
     Route: 065
     Dates: start: 20140730, end: 20150215
  2. ASPIRIN. [Concomitant]
     Active Substance: ASPIRIN
  3. EZETROL [Concomitant]
     Active Substance: EZETIMIBE
  4. ROSUVASTATIN [Concomitant]
     Active Substance: ROSUVASTATIN
  5. TEMODAL [Suspect]
     Active Substance: TEMOZOLOMIDE
     Dosage: UNK
     Route: 065
     Dates: start: 2015, end: 201504
  6. RANITIDINE [Concomitant]
     Active Substance: RANITIDINE\RANITIDINE HYDROCHLORIDE
  7. DEXAMETHASONE. [Suspect]
     Active Substance: DEXAMETHASONE
     Dosage: UNK
     Route: 065
     Dates: start: 201406
  8. LEVETIRACETAM. [Concomitant]
     Active Substance: LEVETIRACETAM
  9. METOPROLOL [Concomitant]
     Active Substance: METOPROLOL
  10. METFORMIN [Concomitant]
     Active Substance: METFORMIN HYDROCHLORIDE

REACTIONS (1)
  - Gastrointestinal haemorrhage [Recovering/Resolving]

NARRATIVE: CASE EVENT DATE: 20150409
